FAERS Safety Report 9163946 (Version 1)
Quarter: 2013Q1

REPORT INFORMATION
  Report Type: Spontaneous
  Country: US (occurrence: US)
  Receive Date: 20130314
  Receipt Date: 20130314
  Transmission Date: 20140127
  Serious: No
  Sender: FDA-Public Use
  Company Number: US-009507513-1303USA006777

PATIENT
  Age: 27 Year
  Sex: Male

DRUGS (1)
  1. MIRALAX [Suspect]
     Indication: COLONOSCOPY
     Dosage: 119 G, ONCE
     Route: 048
     Dates: start: 20130305

REACTIONS (5)
  - Dizziness [Not Recovered/Not Resolved]
  - Asthenia [Not Recovered/Not Resolved]
  - Diarrhoea [Not Recovered/Not Resolved]
  - Overdose [Not Recovered/Not Resolved]
  - Off label use [Unknown]
